FAERS Safety Report 7757079-9 (Version None)
Quarter: 2011Q3

REPORT INFORMATION
  Report Type: 
  Country: None (occurrence: None)
  Receive Date: 20110916
  Receipt Date: 20110913
  Transmission Date: 20111222
  Serious: No
  Sender: FDA-Public Use
  Company Number: US-OPTIMER-20110018

PATIENT

DRUGS (7)
  1. DIFICID [Suspect]
     Indication: CLOSTRIDIUM TEST POSITIVE
  2. IBUPROFEN [Concomitant]
     Dosage: UNK
     Route: 048
  3. FLAGYL [Concomitant]
     Indication: DIARRHOEA
     Dosage: 500 MG, TID
     Route: 048
     Dates: start: 20110713, end: 20110801
  4. SIMVASTATIN [Concomitant]
     Indication: HYPERLIPIDAEMIA
     Dosage: 40 MG, QD
     Route: 048
  5. DIFICID [Suspect]
     Indication: CLOSTRIDIUM DIFFICILE COLITIS
     Dosage: 200 MG, BID
     Route: 048
     Dates: start: 20110804, end: 20110813
  6. RAMIPRIL [Concomitant]
     Indication: HYPERTENSION
     Dosage: 5 MG, QD
     Route: 048
  7. FLAGYL [Concomitant]
     Indication: CLOSTRIDIUM TEST POSITIVE
     Dosage: 500 MG, TID
     Route: 048
     Dates: start: 20110906

REACTIONS (4)
  - DRUG INEFFECTIVE [None]
  - DIARRHOEA [None]
  - CLOSTRIDIUM TEST POSITIVE [None]
  - INFECTION [None]
